FAERS Safety Report 9893894 (Version 1)
Quarter: 2014Q1

REPORT INFORMATION
  Report Type: Spontaneous
  Country: US (occurrence: US)
  Receive Date: 20140213
  Receipt Date: 20140213
  Transmission Date: 20141002
  Serious: Yes (Hospitalization)
  Sender: FDA-Public Use
  Company Number: US-JNJFOC-20140205951

PATIENT
  Age: 67 Year
  Sex: Male
  Weight: 122.47 kg

DRUGS (8)
  1. SIMPONI [Suspect]
     Indication: RHEUMATOID ARTHRITIS
     Route: 058
     Dates: start: 2013, end: 201401
  2. AMIODARONE [Concomitant]
     Indication: HEART RATE
     Route: 065
  3. LOPRESSOR [Concomitant]
     Indication: CARDIAC DISORDER
     Route: 065
  4. ELIQUIS [Concomitant]
     Indication: CARDIAC DISORDER
     Route: 065
  5. TRICOR [Concomitant]
     Route: 065
  6. SIMVASTATIN [Concomitant]
     Route: 065
  7. FOLIC ACID [Concomitant]
     Route: 065
  8. BABY ASPIRIN [Concomitant]
     Route: 065

REACTIONS (4)
  - Atrial fibrillation [Unknown]
  - Pain [Not Recovered/Not Resolved]
  - Drug dose omission [Unknown]
  - Device malfunction [Unknown]
